FAERS Safety Report 5814949-6 (Version None)
Quarter: 2008Q3

REPORT INFORMATION
  Report Type: 
  Country: None (occurrence: None)
  Receive Date: 20080718
  Receipt Date: 20080710
  Transmission Date: 20090109
  Serious: Yes (Hospitalization)
  Sender: FDA-Public Use
  Company Number: PHEH2008US06151

PATIENT
  Sex: Female

DRUGS (1)
  1. LAMISIL [Suspect]

REACTIONS (9)
  - HEADACHE [None]
  - HEPATITIS [None]
  - JAUNDICE [None]
  - NAUSEA [None]
  - PAIN [None]
  - PANCREATITIS [None]
  - URINE COLOUR ABNORMAL [None]
  - VOMITING [None]
  - WEIGHT DECREASED [None]
